FAERS Safety Report 6149826-7 (Version None)
Quarter: 2009Q2

REPORT INFORMATION
  Report Type: 
  Country: None (occurrence: None)
  Receive Date: 20090409
  Receipt Date: 20090401
  Transmission Date: 20091009
  Serious: Yes (Hospitalization, Other)
  Sender: FDA-Public Use
  Company Number: PHHO2009DE04349

PATIENT
  Sex: Female

DRUGS (23)
  1. CYCLOSPORINE [Suspect]
     Indication: RENAL TRANSPLANT
     Dosage: 325 MG DAILY
     Route: 048
     Dates: start: 20030714, end: 20030714
  2. CYCLOSPORINE [Suspect]
     Dosage: 640 MG DAILY
     Route: 048
     Dates: start: 20030715, end: 20030715
  3. CYCLOSPORINE [Suspect]
     Dosage: 775 MG DAILY
     Route: 048
     Dates: start: 20030716, end: 20030716
  4. CYCLOSPORINE [Suspect]
     Dosage: 450 MG, BID
     Route: 048
     Dates: start: 20030717, end: 20030718
  5. CYCLOSPORINE [Suspect]
     Dosage: 750 MG DAILY
     Route: 048
     Dates: start: 20030719, end: 20030719
  6. CYCLOSPORINE [Suspect]
     Dosage: 400 MG, BID
     Route: 048
     Dates: start: 20030720, end: 20060119
  7. MYCOPHENOLATE MOFETIL [Suspect]
     Indication: RENAL TRANSPLANT
     Dosage: 1 G, BID
     Route: 048
     Dates: start: 20030714
  8. DIPIDOLOR [Concomitant]
  9. PANTOZOL [Concomitant]
     Dosage: UNK
  10. ROCALTROL [Concomitant]
  11. ACTONEL [Concomitant]
     Dosage: UNK
  12. PRAVASTATIN SODIUM [Concomitant]
     Dosage: UNK
  13. NORVASC [Concomitant]
     Dosage: UNK
  14. RANITIDINE HCL [Concomitant]
  15. TAZOBAC [Concomitant]
     Dosage: UNK
  16. NEORECORMON [Concomitant]
  17. BELOC ZOK [Concomitant]
     Dosage: UNK
  18. CALCILAC KT [Concomitant]
     Dosage: UNK
  19. SPASMEX [Concomitant]
     Dosage: UNK
  20. CYNT [Concomitant]
  21. BAYOTENSIN [Concomitant]
     Dosage: UNK
  22. LIQUAEMIN INJ [Concomitant]
  23. METRONIDAZOLE HCL [Concomitant]
     Dosage: UNK

REACTIONS (2)
  - GLOMERULONEPHRITIS MEMBRANOPROLIFERATIVE [None]
  - PERITONITIS [None]
